FAERS Safety Report 17299832 (Version 1)
Quarter: 2020Q1

REPORT INFORMATION
  Report Type: Spontaneous
  Country: US (occurrence: US)
  Receive Date: 20200103
  Receipt Date: 20200103
  Transmission Date: 20200409
  Serious: Yes (Hospitalization)
  Sender: FDA-Public Use
  Company Number: None

PATIENT
  Age: 38 Year
  Sex: Female

DRUGS (1)
  1. HUMIRA [Suspect]
     Active Substance: ADALIMUMAB
     Indication: HIDRADENITIS
     Dosage: ?          OTHER FREQUENCY:AS DIRECTED;?
     Route: 058
     Dates: start: 20191128

REACTIONS (2)
  - Condition aggravated [None]
  - Hospitalisation [None]

NARRATIVE: CASE EVENT DATE: 20200102
